FAERS Safety Report 9950856 (Version 1)
Quarter: 2014Q1

REPORT INFORMATION
  Report Type: Spontaneous
  Country: US (occurrence: US)
  Receive Date: 20140304
  Receipt Date: 20140304
  Transmission Date: 20141002
  Serious: No
  Sender: FDA-Public Use
  Company Number: US-ABBVIE-13P-163-1069942-00

PATIENT
  Age: 64 Year
  Sex: Male

DRUGS (4)
  1. HUMIRA [Suspect]
     Indication: CROHN^S DISEASE
     Dates: start: 20130123
  2. METFORMIN [Concomitant]
     Indication: DIABETES MELLITUS
     Dosage: DAILY
  3. GLYBURIDE [Concomitant]
     Indication: DIABETES MELLITUS
     Dosage: DAILY
  4. INSULIN [Concomitant]
     Indication: DIABETES MELLITUS

REACTIONS (2)
  - Nasopharyngitis [Not Recovered/Not Resolved]
  - Hypersensitivity [Not Recovered/Not Resolved]
